FAERS Safety Report 11595320 (Version 3)
Quarter: 2016Q2

REPORT INFORMATION
  Report Type: Report from Study
  Country: CA (occurrence: CA)
  Receive Date: 20151006
  Receipt Date: 20160408
  Transmission Date: 20160815
  Serious: Yes (Hospitalization, Other)
  Sender: FDA-Public Use
  Company Number: CA-ROCHE-1237777

PATIENT
  Age: 56 Year
  Sex: Male
  Weight: 96.6 kg

DRUGS (22)
  1. TRAMADOL. [Suspect]
     Active Substance: TRAMADOL
     Indication: PAIN
     Route: 065
  2. PREDNISONE. [Concomitant]
     Active Substance: PREDNISONE
  3. PANTOPRAZOLE [Concomitant]
     Active Substance: PANTOPRAZOLE SODIUM
  4. RITUXAN [Suspect]
     Active Substance: RITUXIMAB
     Indication: RHEUMATOID ARTHRITIS
  5. METFORMIN [Concomitant]
     Active Substance: METFORMIN HYDROCHLORIDE
  6. RITUXAN [Suspect]
     Active Substance: RITUXIMAB
     Indication: VASCULITIS
     Dosage: MOST RECENT RITUXIMAB DOSE WAS ON 17/NOV/2015.
     Route: 042
     Dates: start: 20151103
  7. LYRICA [Suspect]
     Active Substance: PREGABALIN
     Indication: PRODUCT USED FOR UNKNOWN INDICATION
     Route: 065
  8. ORENCIA [Suspect]
     Active Substance: ABATACEPT
     Indication: PRODUCT USED FOR UNKNOWN INDICATION
     Route: 065
  9. NIFEDIPINE. [Concomitant]
     Active Substance: NIFEDIPINE
  10. RITUXAN [Suspect]
     Active Substance: RITUXIMAB
     Indication: ALLERGIC GRANULOMATOUS ANGIITIS
     Dosage: MOST RECENT RITUXIMAB DOSE WAS ON 13/FEB/2013.
     Route: 042
     Dates: start: 20130130
  11. OXYNEO [Concomitant]
     Active Substance: OXYCODONE
  12. PLAQUENIL [Concomitant]
     Active Substance: HYDROXYCHLOROQUINE SULFATE
  13. ACETAMINOPHEN. [Concomitant]
     Active Substance: ACETAMINOPHEN
     Indication: PREMEDICATION
     Route: 048
     Dates: start: 20130130
  14. COUMADIN [Concomitant]
     Active Substance: WARFARIN SODIUM
  15. AMITRIPTYLINE [Concomitant]
     Active Substance: AMITRIPTYLINE
  16. METHOTREXATE [Suspect]
     Active Substance: METHOTREXATE
     Indication: PRODUCT USED FOR UNKNOWN INDICATION
     Route: 065
  17. RISEDRONATE [Concomitant]
     Active Substance: RISEDRONATE SODIUM
  18. EFFEXOR [Concomitant]
     Active Substance: VENLAFAXINE HYDROCHLORIDE
  19. DIPHENHYDRAMINE HCL [Concomitant]
     Active Substance: DIPHENHYDRAMINE HYDROCHLORIDE
     Indication: PREMEDICATION
     Route: 048
     Dates: start: 20130130
  20. OXYCODONE [Concomitant]
     Active Substance: OXYCODONE
  21. AZATHIOPRINE. [Concomitant]
     Active Substance: AZATHIOPRINE
  22. METHYLPREDNISOLONE. [Concomitant]
     Active Substance: METHYLPREDNISOLONE
     Route: 042
     Dates: start: 20130130

REACTIONS (11)
  - Off label use [Unknown]
  - Headache [Unknown]
  - Herpes zoster [Unknown]
  - Vasculitis [Not Recovered/Not Resolved]
  - Lung neoplasm [Unknown]
  - Fall [Unknown]
  - Confusional state [Unknown]
  - Hepatic enzyme increased [Unknown]
  - Pain [Unknown]
  - Central nervous system lesion [Unknown]
  - Drug ineffective [Unknown]

NARRATIVE: CASE EVENT DATE: 201507
